FAERS Safety Report 25942425 (Version 2)
Quarter: 2025Q4

REPORT INFORMATION
  Report Type: Spontaneous
  Country: GB (occurrence: GB)
  Receive Date: 20251021
  Receipt Date: 20251121
  Transmission Date: 20260117
  Serious: Yes (Other)
  Sender: JOHNSON AND JOHNSON
  Company Number: None

PATIENT
  Age: 28 Year
  Sex: Female
  Weight: 50 kg

DRUGS (8)
  1. RISPERDAL CONSTA [Suspect]
     Active Substance: RISPERIDONE
     Indication: Psychotic disorder
     Route: 065
     Dates: start: 20250601, end: 20250801
  2. RISPERDAL CONSTA [Suspect]
     Active Substance: RISPERIDONE
  3. RISPERDAL CONSTA [Suspect]
     Active Substance: RISPERIDONE
  4. RISPERDAL CONSTA [Suspect]
     Active Substance: RISPERIDONE
  5. ABILIFY MAINTENA [Suspect]
     Active Substance: ARIPIPRAZOLE
     Indication: Psychotic disorder
     Dosage: DEPOT INJECTION
     Dates: start: 20200601
  6. PROCYCLIDINE [Concomitant]
     Active Substance: PROCYCLIDINE
     Indication: Restlessness
     Dates: start: 20200106
  7. CITALOPRAM [Concomitant]
     Active Substance: CITALOPRAM
     Indication: Depression
     Dates: start: 20180414
  8. CITALOPRAM [Concomitant]
     Active Substance: CITALOPRAM
     Indication: Anxiety

REACTIONS (4)
  - Tardive dyskinesia [Unknown]
  - Psychotic disorder [Unknown]
  - Mental disorder [Unknown]
  - Impulse-control disorder [Not Recovered/Not Resolved]

NARRATIVE: CASE EVENT DATE: 20210401
